FAERS Safety Report 4692478-3 (Version None)
Quarter: 2005Q2

REPORT INFORMATION
  Report Type: 
  Country: None (occurrence: None)
  Receive Date: 20050613
  Receipt Date: 20050425
  Transmission Date: 20051028
  Serious: No
  Sender: FDA-Public Use
  Company Number: 2005-00873

PATIENT
  Age: 68 Year
  Sex: Female

DRUGS (1)
  1. VELCADE [Suspect]

REACTIONS (1)
  - NAUSEA [None]
